FAERS Safety Report 7851586-6 (Version None)
Quarter: 2011Q4

REPORT INFORMATION
  Report Type: 
  Country: None (occurrence: None)
  Receive Date: 20111026
  Receipt Date: 20111018
  Transmission Date: 20120403
  Serious: Yes (Other)
  Sender: FDA-Public Use
  Company Number: US-ABBOTT-11P-163-0867273-00

PATIENT
  Sex: Male
  Weight: 81.72 kg

DRUGS (6)
  1. HUMIRA [Suspect]
     Indication: CROHN'S DISEASE
     Dosage: FOUR INJECTIONS ON DAY 1
     Dates: start: 20090101, end: 20090101
  2. HUMIRA [Suspect]
     Dosage: TWO INJECTIONS ON DAY 15
     Dates: start: 20090101, end: 20090101
  3. PREDNISONE [Concomitant]
     Indication: CROHN'S DISEASE
  4. HUMIRA [Suspect]
     Dates: start: 20090101
  5. HUMIRA [Suspect]
     Dates: start: 20110601
  6. OTHER UNKNOWN MEDICATIONS [Concomitant]
     Indication: PRODUCT USED FOR UNKNOWN INDICATION

REACTIONS (3)
  - GASTROINTESTINAL INFLAMMATION [None]
  - DRUG INEFFECTIVE [None]
  - ABDOMINAL PAIN [None]
